FAERS Safety Report 7608929-8 (Version None)
Quarter: 2011Q3

REPORT INFORMATION
  Report Type: 
  Country: None (occurrence: None)
  Receive Date: 20110714
  Receipt Date: 20110411
  Transmission Date: 20111222
  Serious: Yes (Hospitalization)
  Sender: FDA-Public Use
  Company Number: CA-GLAXOSMITHKLINE-A0881008A

PATIENT
  Sex: Female

DRUGS (5)
  1. TYKERB [Suspect]
     Indication: BREAST CANCER METASTATIC
     Dosage: 1250MG PER DAY
     Route: 048
     Dates: start: 20100817
  2. METOPROLOL SUCCINATE [Concomitant]
     Route: 065
  3. XELODA [Concomitant]
  4. UNKNOWN MEDICATION [Concomitant]
     Route: 065
  5. RAMIPRIL [Concomitant]
     Route: 065

REACTIONS (8)
  - NAUSEA [None]
  - VOMITING [None]
  - PAIN [None]
  - MALAISE [None]
  - MUSCULOSKELETAL DISCOMFORT [None]
  - DIARRHOEA [None]
  - DEHYDRATION [None]
  - PALMAR-PLANTAR ERYTHRODYSAESTHESIA SYNDROME [None]
